FAERS Safety Report 4282971-X (Version None)
Quarter: 2004Q1

REPORT INFORMATION
  Report Type: 
  Country: None (occurrence: None)
  Receive Date: 20040130
  Receipt Date: 20020731
  Transmission Date: 20041129
  Serious: Yes (Hospitalization)
  Sender: FDA-Public Use
  Company Number: PHBS2002JP09167

PATIENT
  Age: 40 Year
  Sex: Female
  Weight: 57 kg

DRUGS (3)
  1. MECOBALAMIN [Concomitant]
     Dosage: 1500 UG
     Route: 065
  2. EPALRESTAT [Concomitant]
     Dosage: 150 MG
     Route: 065
  3. CARBAMAZEPINE [Suspect]
     Indication: DIABETIC NEUROPATHY
     Dosage: 600 MG/DAY
     Route: 048
     Dates: start: 20010701

REACTIONS (12)
  - ENTEROCOCCAL INFECTION [None]
  - ERYTHEMA [None]
  - GLOBULINS DECREASED [None]
  - HEPATOMEGALY [None]
  - HYPERSENSITIVITY [None]
  - HYPOGAMMAGLOBULINAEMIA [None]
  - LYMPHADENOPATHY [None]
  - PRURITUS [None]
  - PSEUDOMONAS INFECTION [None]
  - PYREXIA [None]
  - SPLENOMEGALY [None]
  - STAPHYLOCOCCAL INFECTION [None]
